FAERS Safety Report 23763246 (Version 1)
Quarter: 2024Q2

REPORT INFORMATION
  Report Type: Spontaneous
  Country: DE (occurrence: None)
  Receive Date: 20240419
  Receipt Date: 20240419
  Transmission Date: 20240716
  Serious: Yes (Other)
  Sender: FDA-Public Use
  Company Number: 2024A089254

PATIENT
  Sex: Male

DRUGS (12)
  1. DAPAGLIFLOZIN [Suspect]
     Active Substance: DAPAGLIFLOZIN
     Dosage: 1 MORNING
     Route: 048
  2. ATENOLOL [Concomitant]
     Active Substance: ATENOLOL
     Dosage: 0.5 MORNING, 1 EVENING
  3. AMLODIPINE BESYLATE [Concomitant]
     Active Substance: AMLODIPINE BESYLATE
     Dosage: 1 MORNING
  4. VALSARTAN [Concomitant]
     Active Substance: VALSARTAN
     Dosage: 1 MORNING
  5. HYDROCHLOROTHIAZIDE [Concomitant]
     Active Substance: HYDROCHLOROTHIAZIDE
     Dosage: 1 MORNING
  6. TORSEMIDE [Concomitant]
     Active Substance: TORSEMIDE
     Dosage: 1 MORNING (2 PIECES)
  7. MOXONIDINE [Concomitant]
     Active Substance: MOXONIDINE
     Dosage: 1 MORNING
  8. MOXONIDINE [Concomitant]
     Active Substance: MOXONIDINE
     Dosage: 1 EVENING
  9. ATORVASTATIN [Concomitant]
     Active Substance: ATORVASTATIN
     Dosage: 2 EVENING
  10. SITAGLIPTIN [Concomitant]
     Active Substance: SITAGLIPTIN
     Dosage: 1 MORNING, 1 EVENING
  11. METFORMIN\SITAGLIPTIN [Concomitant]
     Active Substance: METFORMIN\SITAGLIPTIN
     Dosage: 1 MORNING, 1 EVENING
  12. SPIRONOLACTONE [Concomitant]
     Active Substance: SPIRONOLACTONE
     Dosage: 1 MORNING

REACTIONS (2)
  - Blood glucose abnormal [Unknown]
  - Blood pressure abnormal [Unknown]
